FAERS Safety Report 9133837 (Version 1)
Quarter: 2013Q1

REPORT INFORMATION
  Report Type: Other
  Country: ES (occurrence: ES)
  Receive Date: 20130303
  Receipt Date: 20130303
  Transmission Date: 20140127
  Serious: No
  Sender: FDA-Public Use
  Company Number: ES-ENDO PHARMACEUTICALS INC.-VANT20120024

PATIENT
  Age: 74 Year
  Sex: Male

DRUGS (1)
  1. VANTAS [Suspect]
     Indication: PROSTATE CANCER METASTATIC
     Route: 058
     Dates: start: 20110511

REACTIONS (7)
  - Implant site discharge [Unknown]
  - Wrong technique in drug usage process [Unknown]
  - Implant site inflammation [Unknown]
  - Device expulsion [Unknown]
  - Device expulsion [Unknown]
  - Device expulsion [Unknown]
  - Drug ineffective [Unknown]
